FAERS Safety Report 26075649 (Version 1)
Quarter: 2025Q4

REPORT INFORMATION
  Report Type: Spontaneous
  Country: US (occurrence: US)
  Receive Date: 20251121
  Receipt Date: 20251121
  Transmission Date: 20260118
  Serious: No
  Sender: MYLAN
  Company Number: US-MYLANLABS-2025M1092327

PATIENT
  Sex: Female

DRUGS (1)
  1. SCOPOLAMINE TRANSDERMAL SYSTEM [Suspect]
     Active Substance: SCOPOLAMINE
     Indication: Dizziness
     Dosage: 1 MILLIGRAM, Q3D (ONCE EVERY THREE DAYS)
     Dates: start: 20251024

REACTIONS (3)
  - Dizziness [Unknown]
  - Product use in unapproved indication [Unknown]
  - Product adhesion issue [Unknown]
